FAERS Safety Report 26008802 (Version 1)
Quarter: 2025Q4

REPORT INFORMATION
  Report Type: Spontaneous
  Country: BR (occurrence: BR)
  Receive Date: 20251106
  Receipt Date: 20251106
  Transmission Date: 20260117
  Serious: Yes (Other)
  Sender: CURRAX PHARMACEUTICALS
  Company Number: BR-CURRAX PHARMACEUTICALS LLC-BR-2025CUR002231

PATIENT
  Sex: Female

DRUGS (3)
  1. CONTRAVE [Suspect]
     Active Substance: BUPROPION HYDROCHLORIDE\NALTREXONE HYDROCHLORIDE
     Indication: Eating disorder
     Dosage: 392.0 MILLIGRAM(S) (98 MILLIGRAM(S), 4 IN 1 DAY), 8MG/90MG MANUFACTURE: AUG-2024 VALIDITY: JUL-2026
     Route: 048
     Dates: start: 20250927, end: 20251021
  2. CONTRAVE [Suspect]
     Active Substance: BUPROPION HYDROCHLORIDE\NALTREXONE HYDROCHLORIDE
     Indication: Abdominal distension
  3. CONTRAVE [Suspect]
     Active Substance: BUPROPION HYDROCHLORIDE\NALTREXONE HYDROCHLORIDE
     Indication: Abdominal discomfort

REACTIONS (3)
  - Paroxysmal nocturnal haemoglobinuria [Unknown]
  - Condition aggravated [Unknown]
  - Product packaging difficult to open [Unknown]
